FAERS Safety Report 18556714 (Version 1)
Quarter: 2020Q4

REPORT INFORMATION
  Report Type: Spontaneous
  Country: US (occurrence: US)
  Receive Date: 20201128
  Receipt Date: 20201128
  Transmission Date: 20210114
  Serious: Yes (Life-Threatening, Other)
  Sender: FDA-Public Use
  Company Number: US-009507513-2011USA015077

PATIENT
  Age: 67 Year
  Sex: Male
  Weight: 75.9 kg

DRUGS (7)
  1. RANITIDINE HYDROCHLORIDE. [Concomitant]
     Active Substance: RANITIDINE HYDROCHLORIDE
     Dosage: 150MG TWICE PER DAY
     Route: 065
  2. AMARYL [Concomitant]
     Active Substance: GLIMEPIRIDE
     Dosage: UNK
     Route: 065
  3. FLOMAX [Suspect]
     Active Substance: TAMSULOSIN HYDROCHLORIDE
     Indication: PRODUCT USED FOR UNKNOWN INDICATION
     Dosage: 0.4 MILLIGRAM, QD
     Route: 065
  4. LOPID [Concomitant]
     Active Substance: GEMFIBROZIL
     Dosage: 1200 MILLIGRAM QD, ALSO REPORTED AS 600MG TWICE PER DAY
     Route: 065
  5. TOPROL XL [Concomitant]
     Active Substance: METOPROLOL SUCCINATE
     Route: 065
  6. PRINIVIL [Suspect]
     Active Substance: LISINOPRIL
     Route: 065
  7. AVODART [Suspect]
     Active Substance: DUTASTERIDE
     Indication: BENIGN PROSTATIC HYPERPLASIA
     Dosage: 1CAP PER DAY
     Route: 048

REACTIONS (3)
  - Anaphylactic reaction [Recovered/Resolved]
  - Drug ineffective [Recovered/Resolved]
  - Swollen tongue [Recovered/Resolved]

NARRATIVE: CASE EVENT DATE: 200502
